FAERS Safety Report 20053618 (Version 3)
Quarter: 2024Q1

REPORT INFORMATION
  Report Type: Spontaneous
  Country: US (occurrence: US)
  Receive Date: 20211110
  Receipt Date: 20240122
  Transmission Date: 20240410
  Serious: No
  Sender: FDA-Public Use
  Company Number: US-PFIZER INC-2021515684

PATIENT
  Age: 40 Year
  Sex: Female

DRUGS (1)
  1. XELJANZ XR [Suspect]
     Active Substance: TOFACITINIB CITRATE
     Dosage: 11 MG, TAKE 1 TABLET BY ORAL ROUTE EVERY DAY
     Route: 048

REACTIONS (3)
  - Arthritis [Unknown]
  - Stress [Unknown]
  - COVID-19 [Unknown]
